FAERS Safety Report 17736474 (Version 1)
Quarter: 2020Q2

REPORT INFORMATION
  Report Type: Spontaneous
  Country: US (occurrence: US)
  Receive Date: 20200501
  Receipt Date: 20200501
  Transmission Date: 20200714
  Serious: No
  Sender: FDA-Public Use
  Company Number: US-RADIUS HEALTH INC.-2020US000934

PATIENT
  Age: 54 Year
  Sex: Female

DRUGS (4)
  1. TRAZODONE [Concomitant]
     Active Substance: TRAZODONE HYDROCHLORIDE
     Indication: PRODUCT USED FOR UNKNOWN INDICATION
     Dosage: 80 MG QHS
  2. TYMLOS [Suspect]
     Active Substance: ABALOPARATIDE
     Indication: OSTEOPOROSIS POSTMENOPAUSAL
     Dosage: 80MCG, QD
     Route: 058
     Dates: start: 20200211
  3. LEXAPRO [Concomitant]
     Active Substance: ESCITALOPRAM OXALATE
     Indication: PRODUCT USED FOR UNKNOWN INDICATION
     Dosage: 10 MG, QD
     Route: 048
  4. NORCO [Concomitant]
     Active Substance: ACETAMINOPHEN\HYDROCODONE BITARTRATE
     Indication: PRODUCT USED FOR UNKNOWN INDICATION
     Dosage: 10/325, QHS
     Route: 048

REACTIONS (8)
  - Amnesia [Recovered/Resolved]
  - Nausea [Recovered/Resolved]
  - Vertigo [Recovered/Resolved]
  - Abnormal behaviour [Recovered/Resolved]
  - Headache [Recovered/Resolved]
  - Irritability [Recovered/Resolved]
  - Lethargy [Recovered/Resolved]
  - Palpitations [Not Recovered/Not Resolved]

NARRATIVE: CASE EVENT DATE: 20200218
